FAERS Safety Report 9726559 (Version 1)
Quarter: 2013Q4

REPORT INFORMATION
  Report Type: Spontaneous
  Country: BR (occurrence: BR)
  Receive Date: 20131203
  Receipt Date: 20131203
  Transmission Date: 20140711
  Serious: Yes (Death)
  Sender: FDA-Public Use
  Company Number: BR-GLAXOSMITHKLINE-A1051732A

PATIENT
  Sex: Male
  Weight: 60 kg

DRUGS (2)
  1. FISIOGEL BODY LOTION [Suspect]
     Indication: DRY SKIN
     Route: 061
     Dates: start: 2010, end: 20131008
  2. FISIOGEL DERMOLIMPIADOR [Suspect]
     Indication: PROPHYLAXIS
     Route: 061
     Dates: start: 2010, end: 20131008

REACTIONS (2)
  - Ill-defined disorder [Fatal]
  - Fracture [Recovered/Resolved]
